FAERS Safety Report 7841918-7 (Version None)
Quarter: 2011Q4

REPORT INFORMATION
  Report Type: 
  Country: None (occurrence: None)
  Receive Date: 20111025
  Receipt Date: 20111018
  Transmission Date: 20120403
  Serious: Yes (Hospitalization, Other)
  Sender: FDA-Public Use
  Company Number: PHEH2008US06108

PATIENT
  Sex: Female
  Weight: 88.435 kg

DRUGS (15)
  1. PAXIL [Concomitant]
     Dosage: UNK
  2. ATIVAN [Concomitant]
     Dosage: UNK
  3. METFORMIN HCL [Concomitant]
  4. PROVERA [Suspect]
     Indication: HORMONE REPLACEMENT THERAPY
     Dosage: UNK
     Dates: start: 19930128, end: 19970109
  5. DECADRON [Concomitant]
  6. ACYCLOVIR [Concomitant]
  7. COUMADIN [Concomitant]
  8. KEFLEX [Concomitant]
  9. CALCIUM D SANDOZ [Concomitant]
  10. ESTRADERM [Suspect]
     Indication: HORMONE REPLACEMENT THERAPY
     Dosage: UNK
     Route: 062
     Dates: start: 19940608, end: 19970109
  11. PREMPRO [Suspect]
     Indication: HORMONE REPLACEMENT THERAPY
     Dosage: UNK
     Dates: start: 19970109, end: 20020819
  12. EFFEXOR [Concomitant]
  13. COLACE [Concomitant]
  14. ZOLOFT [Concomitant]
  15. ARIMIDEX [Concomitant]

REACTIONS (26)
  - OEDEMA PERIPHERAL [None]
  - HOT FLUSH [None]
  - DYSURIA [None]
  - MIGRAINE [None]
  - GASTROOESOPHAGEAL REFLUX DISEASE [None]
  - BREAST CANCER [None]
  - PSYCHIATRIC SYMPTOM [None]
  - CONTUSION [None]
  - PAIN [None]
  - ANXIETY [None]
  - FEELING ABNORMAL [None]
  - INSOMNIA [None]
  - HYPERLIPIDAEMIA [None]
  - ECONOMIC PROBLEM [None]
  - CELLULITIS [None]
  - PALPITATIONS [None]
  - POLLAKIURIA [None]
  - CONSTIPATION [None]
  - RHINORRHOEA [None]
  - OBESITY [None]
  - FEAR OF DISEASE [None]
  - SCAR [None]
  - DEFORMITY [None]
  - METASTASES TO LYMPH NODES [None]
  - NIGHT SWEATS [None]
  - LIFE EXPECTANCY SHORTENED [None]
